FAERS Safety Report 6717280-X (Version None)
Quarter: 2010Q2

REPORT INFORMATION
  Report Type: 
  Country: None (occurrence: None)
  Receive Date: 20100505
  Receipt Date: 20100422
  Transmission Date: 20101027
  Serious: Yes (Hospitalization)
  Sender: FDA-Public Use
  Company Number: TR-001914

PATIENT
  Age: 32 Year
  Sex: Female

DRUGS (4)
  1. TRIPTORELIN           (TRIPTORELIN) SOLUTION FOR INJECTION 0.5 MG [Suspect]
     Indication: ADRENAL SUPPRESSION
     Dosage: 0.5 MG SUBCUTANEOUS
     Route: 058
  2. MENOTROPINS [Suspect]
     Indication: OVARIAN HYPERSTIMULATION SYNDROME
     Dosage: SUBCUTANEOUS
     Route: 058
  3. CHORAON (CHORIONIC GONADOTROPHIN) POWDER AND SOLVENT FOR SOLUTION FOR [Suspect]
     Dosage: INTRAMUSCULAR
     Route: 030
  4. PROGESTERONE [Concomitant]

REACTIONS (9)
  - ASCITES [None]
  - DISEASE COMPLICATION [None]
  - HAEMATOCRIT INCREASED [None]
  - HYPOALBUMINAEMIA [None]
  - JUGULAR VEIN THROMBOSIS [None]
  - MUSCULOSKELETAL DISCOMFORT [None]
  - NAUSEA [None]
  - OEDEMA PERIPHERAL [None]
  - OVARIAN HYPERSTIMULATION SYNDROME [None]
